FAERS Safety Report 20594535 (Version 2)
Quarter: 2022Q1

REPORT INFORMATION
  Report Type: Spontaneous
  Country: CN (occurrence: CN)
  Receive Date: 20220315
  Receipt Date: 20220321
  Transmission Date: 20220423
  Serious: Yes (Death, Other)
  Sender: FDA-Public Use
  Company Number: CN-TAKEDA-2022TUS016920

PATIENT
  Age: 54 Year
  Sex: Female

DRUGS (1)
  1. NINLARO [Suspect]
     Active Substance: IXAZOMIB CITRATE
     Indication: Plasma cell myeloma
     Dosage: UNK
     Route: 065
     Dates: start: 202008, end: 202110

REACTIONS (2)
  - Pneumonia [Fatal]
  - Constipation [Unknown]

NARRATIVE: CASE EVENT DATE: 20200801
